FAERS Safety Report 9008628 (Version 1)
Quarter: 2013Q1

REPORT INFORMATION
  Report Type: Spontaneous
  Country: US (occurrence: US)
  Receive Date: 20130111
  Receipt Date: 20130111
  Transmission Date: 20140127
  Serious: Yes (Other)
  Sender: FDA-Public Use
  Company Number: US-ELI_LILLY_AND_COMPANY-US201301001327

PATIENT
  Sex: Female

DRUGS (4)
  1. CYMBALTA [Suspect]
     Indication: DEPRESSION
     Dosage: 30 MG, QD
  2. ARMOUR THYROID [Concomitant]
  3. LOSARTAN/HYDROCHLOORTHIAZIDE [Concomitant]
  4. SINGULAIR [Concomitant]

REACTIONS (5)
  - Suicidal ideation [Unknown]
  - Malaise [Unknown]
  - Drug withdrawal syndrome [Unknown]
  - Depression [Unknown]
  - Drug ineffective [Unknown]
